FAERS Safety Report 12688800 (Version 2)
Quarter: 2016Q4

REPORT INFORMATION
  Report Type: Spontaneous
  Country: JP (occurrence: JP)
  Receive Date: 20160825
  Receipt Date: 20161121
  Transmission Date: 20170207
  Serious: Yes (Other)
  Sender: FDA-Public Use
  Company Number: JP-ABBVIE-16P-087-1635987-00

PATIENT
  Sex: Female
  Weight: 50.05 kg

DRUGS (10)
  1. ULTIVA [Concomitant]
     Active Substance: REMIFENTANIL HYDROCHLORIDE
     Indication: GENERAL ANAESTHESIA
     Route: 055
     Dates: start: 20160427, end: 20160427
  2. PROPOFOL. [Concomitant]
     Active Substance: PROPOFOL
     Dates: start: 20160427, end: 20160427
  3. ACELIO INTRAVENOUS INJECTION [Concomitant]
     Indication: GENERAL ANAESTHESIA
     Route: 042
     Dates: start: 20160427, end: 20160427
  4. ROCURONIUM BROMIDE. [Concomitant]
     Active Substance: ROCURONIUM BROMIDE
     Indication: GENERAL ANAESTHESIA
     Route: 042
     Dates: start: 20160427, end: 20160427
  5. BRIDION [Concomitant]
     Active Substance: SUGAMMADEX
     Dates: start: 20160427, end: 20160427
  6. SEVOFRANE [Concomitant]
     Active Substance: SEVOFLURANE
     Indication: GENERAL ANAESTHESIA
     Route: 055
     Dates: start: 20160427, end: 20160427
  7. BRIDION [Concomitant]
     Active Substance: SUGAMMADEX
     Indication: GENERAL ANAESTHESIA
     Route: 042
     Dates: start: 20160427, end: 20160427
  8. ROCURONIUM BROMIDE. [Concomitant]
     Active Substance: ROCURONIUM BROMIDE
     Dates: start: 20160427, end: 20160427
  9. LEVOBUPIVACAINE HYDROCHLORIDE (POPSCAINE) [Suspect]
     Active Substance: LEVOBUPIVACAINE HYDROCHLORIDE
     Indication: NEUROMUSCULAR BLOCKING THERAPY
     Dosage: POPSCAINE 0.25% INJECTION, 25ML X 2 SINGLE INJECTION
     Route: 050
     Dates: start: 20160427, end: 20160427
  10. PROPOFOL. [Concomitant]
     Active Substance: PROPOFOL
     Indication: GENERAL ANAESTHESIA
     Route: 042
     Dates: start: 20160427, end: 20160427

REACTIONS (1)
  - Anaesthetic complication [Recovering/Resolving]
